FAERS Safety Report 7903906-1 (Version None)
Quarter: 2011Q4

REPORT INFORMATION
  Report Type: 
  Country: None (occurrence: None)
  Receive Date: 20111109
  Receipt Date: 20111025
  Transmission Date: 20120403
  Serious: Yes (Other)
  Sender: FDA-Public Use
  Company Number: PT-PFIZER INC-2011260262

PATIENT
  Sex: Male
  Weight: 76 kg

DRUGS (3)
  1. FLUDEX - SLOW RELEASE [Concomitant]
     Indication: HYPERTENSION
     Dosage: 1.5 MG, 1X/DAY
     Route: 048
  2. SUTENT [Suspect]
     Indication: RENAL CANCER METASTATIC
     Dosage: 50 MG, 1X/DAY
     Route: 048
     Dates: start: 20111017, end: 20111018
  3. HYDROCORTONE [Concomitant]
     Indication: TOTAL ADRENALECTOMY
     Dosage: 30 MG, 1X/DAY
     Route: 048

REACTIONS (7)
  - ERYTHEMA [None]
  - DYSPHONIA [None]
  - ANGIOEDEMA [None]
  - PRURITUS [None]
  - URTICARIA [None]
  - LIP OEDEMA [None]
  - FACE OEDEMA [None]
